FAERS Safety Report 13523362 (Version 1)
Quarter: 2017Q2

REPORT INFORMATION
  Report Type: Spontaneous
  Country: US (occurrence: US)
  Receive Date: 20170508
  Receipt Date: 20170508
  Transmission Date: 20170830
  Serious: No
  Sender: FDA-Public Use
  Company Number: US-VIFOR (INTERNATIONAL) INC.-VIT-2017-02936

PATIENT
  Sex: Male

DRUGS (7)
  1. ACEBUTOLOL [Concomitant]
     Active Substance: ACEBUTOLOL
  2. VELTASSA [Suspect]
     Active Substance: PATIROMER
     Indication: HYPERKALAEMIA
     Route: 048
  3. CLONIDINE. [Concomitant]
     Active Substance: CLONIDINE
  4. MONTELUKAST [Concomitant]
     Active Substance: MONTELUKAST SODIUM
  5. WARFARIN [Concomitant]
     Active Substance: WARFARIN
  6. LIDOCAINE HYDROCHLORIDE/PRILOCAINE [Concomitant]
  7. AMLODIPINE [Concomitant]
     Active Substance: AMLODIPINE BESYLATE

REACTIONS (1)
  - Dizziness [Not Recovered/Not Resolved]
